FAERS Safety Report 9415368 (Version 1)
Quarter: 2013Q3

REPORT INFORMATION
  Report Type: Spontaneous
  Country: CA (occurrence: CA)
  Receive Date: 20130723
  Receipt Date: 20130723
  Transmission Date: 20140515
  Serious: Yes (Hospitalization)
  Sender: FDA-Public Use
  Company Number: PHHY2013CA076416

PATIENT
  Sex: 0

DRUGS (4)
  1. GABAPENTIN [Suspect]
     Route: 064
  2. CLOBAZAM [Suspect]
  3. CARBAMAZEPINE [Suspect]
  4. VIGABATRIN [Suspect]

REACTIONS (2)
  - Drug withdrawal syndrome [Unknown]
  - Foetal exposure during pregnancy [Unknown]
